FAERS Safety Report 4864930-9 (Version None)
Quarter: 2005Q4

REPORT INFORMATION
  Report Type: 
  Country: None (occurrence: None)
  Receive Date: 20051201
  Receipt Date: 20050803
  Transmission Date: 20060501
  Serious: No
  Sender: FDA-Public Use
  Company Number: 2005PV000737

PATIENT
  Age: 71 Year
  Sex: Female
  Weight: 67.1324 kg

DRUGS (10)
  1. BYETTA [Suspect]
     Indication: DIABETES MELLITUS
     Dosage: 5 MCG; BID; SC
     Route: 058
     Dates: start: 20050726
  2. SINGULAIR ^DIECKMANN^ [Concomitant]
  3. ADVAIR DISKUS 100/50 [Concomitant]
  4. ALBUTEROL SULFATE AUTOHALER [Concomitant]
  5. DARVOCET-N 50 [Concomitant]
  6. LEVOXYL [Concomitant]
  7. SEREAX [Concomitant]
  8. LIPITOR [Concomitant]
  9. NEXIUM [Concomitant]
  10. ZOLOFT [Concomitant]

REACTIONS (6)
  - ARTHRALGIA [None]
  - CHEST PAIN [None]
  - NAUSEA [None]
  - PAIN IN EXTREMITY [None]
  - SHOULDER PAIN [None]
  - THROAT IRRITATION [None]
